FAERS Safety Report 21620734 (Version 1)
Quarter: 2022Q4

REPORT INFORMATION
  Report Type: Spontaneous
  Country: US (occurrence: None)
  Receive Date: 20221118
  Receipt Date: 20221118
  Transmission Date: 20230113
  Serious: No
  Sender: FDA-Public Use
  Company Number: None

PATIENT
  Age: 60 Year
  Sex: Male
  Weight: 89.3 kg

DRUGS (1)
  1. CISPLATIN [Suspect]
     Active Substance: CISPLATIN
     Dates: end: 20201019

REACTIONS (2)
  - Dysphonia [None]
  - Squamous cell carcinoma [None]

NARRATIVE: CASE EVENT DATE: 20220906
